FAERS Safety Report 23559148 (Version 1)
Quarter: 2024Q1

REPORT INFORMATION
  Report Type: Spontaneous
  Country: US (occurrence: US)
  Receive Date: 20240223
  Receipt Date: 20240223
  Transmission Date: 20240410
  Serious: Yes (Other)
  Sender: FDA-Public Use
  Company Number: US-BAYER-2024A024262

PATIENT
  Age: 67 Year

DRUGS (1)
  1. ALEVE [Suspect]
     Active Substance: NAPROXEN SODIUM
     Dosage: UNK
     Route: 048
     Dates: start: 202306

REACTIONS (3)
  - Gastrointestinal oedema [None]
  - Oedema [None]
  - Abdominal distension [None]

NARRATIVE: CASE EVENT DATE: 20230701
